FAERS Safety Report 7131142-8 (Version None)
Quarter: 2010Q4

REPORT INFORMATION
  Report Type: 
  Country: None (occurrence: None)
  Receive Date: 20101201
  Receipt Date: 20101124
  Transmission Date: 20110411
  Serious: Yes (Hospitalization)
  Sender: FDA-Public Use
  Company Number: JP-B.I. PHARMACEUTICALS,INC./RIDGEFIELD-2010-DE-05711GD

PATIENT
  Sex: Male
  Weight: 45 kg

DRUGS (6)
  1. MOBIC [Suspect]
     Indication: BACK PAIN
     Dosage: 10 MG
     Route: 048
  2. ASPIRIN [Concomitant]
     Indication: LACUNAR INFARCTION
     Dosage: 1DF
     Route: 048
  3. MADOPAR [Concomitant]
     Indication: PARKINSONISM
     Dosage: 3DF
     Route: 048
  4. MAGNESIUM OXIDE [Concomitant]
     Indication: CONSTIPATION
     Dosage: 3DF
     Route: 048
  5. MUCOSTA [Concomitant]
     Indication: GASTRITIS
     Dosage: 3DF
     Route: 048
  6. LOXONIN [Concomitant]
     Indication: SPINAL OSTEOARTHRITIS
     Dosage: 1DF / PRN
     Route: 048

REACTIONS (10)
  - ABDOMINAL PAIN LOWER [None]
  - ANAEMIA [None]
  - COLONIC FISTULA [None]
  - DUODENAL FISTULA [None]
  - DUODENAL ULCER [None]
  - DUODENAL ULCER HAEMORRHAGE [None]
  - FAECES DISCOLOURED [None]
  - FAILURE TO ANASTOMOSE [None]
  - MELAENA [None]
  - SUTURE RELATED COMPLICATION [None]
